FAERS Safety Report 4616631-X (Version None)
Quarter: 2005Q1

REPORT INFORMATION
  Report Type: 
  Country: None (occurrence: None)
  Receive Date: 20050321
  Receipt Date: 20050302
  Transmission Date: 20050727
  Serious: Yes (Hospitalization)
  Sender: FDA-Public Use
  Company Number: 8965

PATIENT
  Age: 72 Year
  Sex: Male

DRUGS (2)
  1. METHOTREXATE [Suspect]
     Indication: RHEUMATOID ARTHRITIS
     Dosage: 15 MG WEEKLY PO
     Route: 048
  2. PREDNISOLONE [Concomitant]

REACTIONS (12)
  - ANOREXIA [None]
  - ASTHENIA [None]
  - BIOPSY BONE MARROW ABNORMAL [None]
  - ECCHYMOSIS [None]
  - FATIGUE [None]
  - HISTOPLASMOSIS DISSEMINATED [None]
  - OPPORTUNISTIC INFECTION [None]
  - PANCYTOPENIA [None]
  - SPEECH DISORDER [None]
  - TONGUE ULCERATION [None]
  - URINE ANALYSIS ABNORMAL [None]
  - WEIGHT DECREASED [None]
